FAERS Safety Report 24840468 (Version 1)
Quarter: 2025Q1

REPORT INFORMATION
  Report Type: Spontaneous
  Country: BR (occurrence: BR)
  Receive Date: 20250114
  Receipt Date: 20250114
  Transmission Date: 20250408
  Serious: Yes (Death, Other)
  Sender: INCYTE
  Company Number: BR-INCYTE CORPORATION-2024IN010117

PATIENT

DRUGS (1)
  1. TAFASITAMAB [Suspect]
     Active Substance: TAFASITAMAB
     Indication: Product used for unknown indication
     Route: 065

REACTIONS (4)
  - Abdominal mass [Fatal]
  - Disease progression [Fatal]
  - Intestinal obstruction [Fatal]
  - Multiple organ dysfunction syndrome [Fatal]
